FAERS Safety Report 18071971 (Version 7)
Quarter: 2021Q3

REPORT INFORMATION
  Report Type: Spontaneous
  Country: US (occurrence: US)
  Receive Date: 20200727
  Receipt Date: 20210728
  Transmission Date: 20211014
  Serious: Yes (Hospitalization, Other)
  Sender: FDA-Public Use
  Company Number: US-PFIZER INC-2020282220

PATIENT
  Age: 74 Year
  Sex: Female

DRUGS (2)
  1. GABAPENTIN. [Concomitant]
     Active Substance: GABAPENTIN
     Indication: FIBROMYALGIA
     Dosage: 300 MG, 3X/DAY
  2. XELJANZ [Suspect]
     Active Substance: TOFACITINIB CITRATE
     Indication: RHEUMATOID ARTHRITIS
     Dosage: 10 MG, TWICE A DAY
     Route: 048
     Dates: start: 20200715

REACTIONS (7)
  - Pulmonary thrombosis [Unknown]
  - Off label use [Unknown]
  - Therapeutic product effect decreased [Unknown]
  - Asthma [Unknown]
  - Diarrhoea [Recovered/Resolved]
  - Dyspnoea [Unknown]
  - Mutism [Unknown]

NARRATIVE: CASE EVENT DATE: 202007
